FAERS Safety Report 15522151 (Version 1)
Quarter: 2018Q4

REPORT INFORMATION
  Report Type: Spontaneous
  Country: US (occurrence: US)
  Receive Date: 20181018
  Receipt Date: 20181018
  Transmission Date: 20190205
  Serious: No
  Sender: FDA-Public Use
  Company Number: None

PATIENT
  Age: 42 Year
  Sex: Female

DRUGS (1)
  1. TALTZ [Suspect]
     Active Substance: IXEKIZUMAB
     Indication: PSORIASIS
     Dosage: INJECT 160 MG (2 PENS) SUBCUTANEOUSLY AT WEEK 0, THEN 80 MG (1 PEN) AT WEEK 2 AS DIRECTED
     Route: 058
     Dates: start: 201809

REACTIONS (1)
  - Psoriasis [None]
